FAERS Safety Report 9258686 (Version 3)
Quarter: 2013Q3

REPORT INFORMATION
  Report Type: Spontaneous
  Country: US (occurrence: US)
  Receive Date: 20130426
  Receipt Date: 20130719
  Transmission Date: 20140515
  Serious: Yes (Other)
  Sender: FDA-Public Use
  Company Number: US-PFIZER INC-2013128476

PATIENT
  Age: 52 Year
  Sex: Female

DRUGS (2)
  1. BOSULIF [Suspect]
     Indication: CHRONIC MYELOID LEUKAEMIA (IN REMISSION)
     Dosage: 400 MG, UNK
     Route: 048
     Dates: start: 20130205
  2. BOSULIF [Suspect]
     Dosage: 100 MG, 4X/DAY
     Route: 048
     Dates: start: 20130214

REACTIONS (4)
  - Nausea [Unknown]
  - Vomiting [Unknown]
  - Malaise [Unknown]
  - Drug intolerance [Unknown]
